FAERS Safety Report 4444640-2 (Version None)
Quarter: 2004Q3

REPORT INFORMATION
  Report Type: 
  Country: None (occurrence: None)
  Receive Date: 20040909
  Receipt Date: 20040831
  Transmission Date: 20050211
  Serious: Yes (Other)
  Sender: FDA-Public Use
  Company Number: US-JNJFOC-20040600989

PATIENT
  Age: 58 Year
  Sex: Male

DRUGS (3)
  1. DURAGESIC [Suspect]
     Route: 062
  2. PERCOCET [Concomitant]
  3. PERCOCET [Concomitant]

REACTIONS (4)
  - LOSS OF CONSCIOUSNESS [None]
  - RESPIRATORY ARREST [None]
  - SOMNOLENCE [None]
  - THROAT TIGHTNESS [None]
